FAERS Safety Report 9044918 (Version 1)
Quarter: 2013Q1

REPORT INFORMATION
  Report Type: Report from Study
  Country: JP (occurrence: JP)
  Receive Date: 20130130
  Receipt Date: 20130130
  Transmission Date: 20140127
  Serious: Yes (Other)
  Sender: FDA-Public Use
  Company Number: JP-GLAXOSMITHKLINE-B0860763A

PATIENT
  Sex: Male
  Weight: 39 kg

DRUGS (14)
  1. ARRANON [Suspect]
     Indication: T-CELL TYPE ACUTE LEUKAEMIA
     Dosage: 650MGM2 PER DAY
     Route: 042
     Dates: start: 20090213, end: 20090217
  2. LEUNASE [Suspect]
     Indication: T-CELL TYPE ACUTE LEUKAEMIA
     Dosage: 1200IU3 PER DAY
     Route: 042
     Dates: start: 20090223, end: 20090302
  3. ETOPOSIDE [Concomitant]
     Indication: NEOPLASM MALIGNANT
     Dates: start: 20081027, end: 20081027
  4. ENDOXAN [Concomitant]
     Indication: NEOPLASM MALIGNANT
     Dates: start: 20081028, end: 20081029
  5. NOVOLIN R [Concomitant]
     Indication: HYPERGLYCAEMIA
     Dates: start: 20090213, end: 20090225
  6. SOLUMEDROL [Concomitant]
     Indication: GRAFT VERSUS HOST DISEASE
     Route: 042
     Dates: start: 20090213, end: 20090219
  7. FULCALIQ [Concomitant]
     Indication: DECREASED APPETITE
     Dates: start: 20090213, end: 20090309
  8. KYTRIL [Concomitant]
     Indication: NAUSEA
     Route: 042
     Dates: start: 20090213, end: 20090217
  9. CEFTRIAXONE SODIUM [Concomitant]
     Indication: INFECTION
     Dates: start: 20090216, end: 20090218
  10. VENOGLOBULIN-IH [Concomitant]
     Indication: HYPOGAMMAGLOBULINAEMIA
     Dates: start: 20090220, end: 20090221
  11. NEO-MINOPHAGEN C [Concomitant]
     Indication: HEPATIC FUNCTION ABNORMAL
     Route: 042
     Dates: start: 20090220, end: 20090228
  12. HYDROCORTONE [Concomitant]
     Indication: PROPHYLAXIS
     Dates: start: 20090223, end: 20090302
  13. NEUART [Concomitant]
     Indication: PROPHYLAXIS
     Route: 042
     Dates: start: 20090223, end: 20090228
  14. PREDNISOLONE [Concomitant]
     Indication: GRAFT VERSUS HOST DISEASE
     Dates: start: 20090220, end: 20090309

REACTIONS (11)
  - Hyperbilirubinaemia [Recovered/Resolved]
  - Dysgeusia [Recovered/Resolved]
  - Hypotension [Recovered/Resolved]
  - Hepatic function abnormal [Not Recovered/Not Resolved]
  - Platelet count decreased [Not Recovered/Not Resolved]
  - Hypofibrinogenaemia [Not Recovered/Not Resolved]
  - Antithrombin III decreased [Not Recovered/Not Resolved]
  - Hypoalbuminaemia [Not Recovered/Not Resolved]
  - Somnolence [Recovered/Resolved]
  - Hypoglycaemia [Recovered/Resolved]
  - Hyperglycaemia [Recovered/Resolved]
